FAERS Safety Report 10412961 (Version 2)
Quarter: 2014Q3

REPORT INFORMATION
  Report Type: Spontaneous
  Country: AU (occurrence: AU)
  Receive Date: 20140827
  Receipt Date: 20140904
  Transmission Date: 20150326
  Serious: Yes (Hospitalization)
  Sender: FDA-Public Use
  Company Number: AU-SA-2014SA113867

PATIENT
  Sex: Male

DRUGS (7)
  1. SPIRULINA [Concomitant]
     Active Substance: SPIRULINA
  2. SERETIDE [Concomitant]
     Active Substance: FLUTICASONE FUROATE\SALMETEROL XINAFOATE
  3. PREDNISOLONE. [Concomitant]
     Active Substance: PREDNISOLONE
  4. RENAGEL [Suspect]
     Active Substance: SEVELAMER HYDROCHLORIDE
     Indication: HYPOPHOSPHATAEMIA
     Route: 048
  5. TARGIN [Concomitant]
     Active Substance: NALOXONE HYDROCHLORIDE\OXYCODONE HYDROCHLORIDE
  6. OXIS [Concomitant]
     Active Substance: FORMOTEROL FUMARATE
  7. AUGMENTIN [Concomitant]
     Active Substance: AMOXICILLIN\CLAVULANATE POTASSIUM

REACTIONS (2)
  - Drug administration error [Unknown]
  - Pneumonia [Unknown]
